FAERS Safety Report 5846195-4 (Version None)
Quarter: 2008Q3

REPORT INFORMATION
  Report Type: 
  Country: None (occurrence: None)
  Receive Date: 20080813
  Receipt Date: 20080716
  Transmission Date: 20090109
  Serious: Yes (Disabling)
  Sender: FDA-Public Use
  Company Number: 2008AL002439

PATIENT
  Age: 37 Year
  Sex: Female
  Weight: 49.8957 kg

DRUGS (4)
  1. PHENTERMINE HYDROCHLORIDE [Suspect]
     Indication: DECREASED APPETITE
     Dosage: 15 MG;QD;PO
     Route: 048
     Dates: start: 20070126, end: 20080214
  2. HYDROCHLOROTHIAZIDE [Concomitant]
  3. MULTI-VITAMINS [Concomitant]
  4. MOTRIN [Concomitant]

REACTIONS (21)
  - ABNORMAL SENSATION IN EYE [None]
  - ALOPECIA [None]
  - ARTHRALGIA [None]
  - CONFUSIONAL STATE [None]
  - DISORIENTATION [None]
  - DYSGEUSIA [None]
  - DYSPNOEA [None]
  - EYE SWELLING [None]
  - FACIAL SPASM [None]
  - HYPOAESTHESIA [None]
  - IMPAIRED DRIVING ABILITY [None]
  - IMPAIRED WORK ABILITY [None]
  - LETHARGY [None]
  - MALAISE [None]
  - MIGRAINE [None]
  - MUSCLE SPASMS [None]
  - MUSCULOSKELETAL STIFFNESS [None]
  - OEDEMA PERIPHERAL [None]
  - PAIN [None]
  - PYREXIA [None]
  - VISION BLURRED [None]
